FAERS Safety Report 24704461 (Version 1)
Quarter: 2024Q4

REPORT INFORMATION
  Report Type: Spontaneous
  Country: IT (occurrence: IT)
  Receive Date: 20241206
  Receipt Date: 20241206
  Transmission Date: 20250115
  Serious: Yes (Other)
  Sender: SAMSUNG BIOEPIS
  Company Number: None

PATIENT
  Age: 56 Year
  Sex: Female
  Weight: 59 kg

DRUGS (4)
  1. ADALIMUMAB [Suspect]
     Active Substance: ADALIMUMAB
     Indication: Psoriatic arthropathy
     Route: 058
     Dates: start: 20230903, end: 20240524
  2. METHOTREXATE [Concomitant]
     Active Substance: METHOTREXATE
     Indication: Product used for unknown indication
  3. FOLINA [Concomitant]
     Indication: Product used for unknown indication
  4. BINOSTO [Concomitant]
     Active Substance: ALENDRONATE SODIUM
     Indication: Product used for unknown indication

REACTIONS (2)
  - Psoriatic arthropathy [Recovering/Resolving]
  - Drug ineffective [Recovering/Resolving]

NARRATIVE: CASE EVENT DATE: 20240524
